FAERS Safety Report 10689331 (Version 1)
Quarter: 2015Q1

REPORT INFORMATION
  Report Type: Spontaneous
  Country: US (occurrence: None)
  Receive Date: 20150102
  Receipt Date: 20150102
  Transmission Date: 20150720
  Serious: Yes (Death)
  Sender: FDA-Public Use
  Company Number: None

PATIENT
  Age: 61 Year
  Sex: Male

DRUGS (2)
  1. DIPHENHYDRAMINE [Suspect]
     Active Substance: DIPHENHYDRAMINE
     Indication: MALIGNANT MELANOMA
     Route: 042
     Dates: start: 20141121, end: 20141219
  2. ONDANSETRON [Suspect]
     Active Substance: ONDANSETRON
     Indication: MALIGNANT MELANOMA
     Route: 042
     Dates: start: 20141121, end: 20141219

REACTIONS (1)
  - Death [None]

NARRATIVE: CASE EVENT DATE: 20141219
